FAERS Safety Report 4505474-3 (Version None)
Quarter: 2004Q4

REPORT INFORMATION
  Report Type: 
  Country: None (occurrence: None)
  Receive Date: 20041118
  Receipt Date: 20041115
  Transmission Date: 20050328
  Serious: Yes (Other)
  Sender: FDA-Public Use
  Company Number: 003566

PATIENT
  Age: 61 Year
  Sex: Female

DRUGS (4)
  1. MEDROXYPROGESTERONE ACETATE [Suspect]
     Dates: start: 19860101, end: 19900101
  2. PREMARIN [Suspect]
     Dates: start: 19860101, end: 19980101
  3. PREMPRO [Suspect]
     Dates: start: 19860101, end: 19980101
  4. PROVERA [Suspect]
     Dates: start: 19860101, end: 19900101

REACTIONS (1)
  - BREAST CANCER [None]
